FAERS Safety Report 10866622 (Version 1)
Quarter: 2015Q1

REPORT INFORMATION
  Report Type: Not Available
  Country: US (occurrence: US)
  Receive Date: 20150225
  Receipt Date: 20150225
  Transmission Date: 20150721
  Serious: No
  Sender: FDA-Public Use
  Company Number: US-LUPIN PHARMACEUTICALS INC.-E2B_00001746

PATIENT
  Age: 2 Year
  Sex: Female
  Weight: 14.07 kg

DRUGS (3)
  1. SUPRAX [Suspect]
     Active Substance: CEFIXIME
     Dates: start: 20140217
  2. SUPRAX [Suspect]
     Active Substance: CEFIXIME
     Indication: URINARY TRACT INFECTION
     Dates: start: 20140210, end: 20140212
  3. KEFLEX [Suspect]
     Active Substance: CEPHALEXIN
     Indication: URINARY TRACT INFECTION
     Route: 065

REACTIONS (2)
  - Drug effect delayed [Not Recovered/Not Resolved]
  - Pyrexia [Not Recovered/Not Resolved]

NARRATIVE: CASE EVENT DATE: 20140218
